FAERS Safety Report 5763903-1 (Version None)
Quarter: 2008Q2

REPORT INFORMATION
  Report Type: 
  Country: None (occurrence: None)
  Receive Date: 20080606
  Receipt Date: 20080606
  Transmission Date: 20081010
  Serious: Yes (Hospitalization, Other)
  Sender: FDA-Public Use
  Company Number: None

PATIENT
  Sex: Male
  Weight: 90.7194 kg

DRUGS (1)
  1. ARTICAINE [Suspect]
     Indication: TOOTH REPAIR
     Dosage: 1 CARPULE ++ 5 INJECTIONS
     Dates: start: 20050807, end: 20050807

REACTIONS (4)
  - HYPOAESTHESIA [None]
  - NERVE INJURY [None]
  - PAIN [None]
  - TINNITUS [None]
